FAERS Safety Report 19996327 (Version 2)
Quarter: 2022Q2

REPORT INFORMATION
  Report Type: Spontaneous
  Country: US (occurrence: US)
  Receive Date: 20211026
  Receipt Date: 20220407
  Transmission Date: 20220721
  Serious: No
  Sender: FDA-Public Use
  Company Number: US-PFIZER INC-202100978039

PATIENT
  Age: 15 Year
  Sex: Male
  Weight: 48.53 kg

DRUGS (1)
  1. LIDOCAINE HYDROCHLORIDE [Suspect]
     Active Substance: LIDOCAINE HYDROCHLORIDE
     Indication: Local anaesthesia
     Dosage: UNK
     Dates: start: 20210714

REACTIONS (15)
  - Hypertension [Unknown]
  - Tachycardia [Unknown]
  - Speech disorder [Unknown]
  - Hypoacusis [Unknown]
  - Tremor [Unknown]
  - Dyskinesia [Unknown]
  - Dyspnoea [Unknown]
  - Somnolence [Unknown]
  - Asthenia [Unknown]
  - Malaise [Unknown]
  - Dizziness [Unknown]
  - Pruritus [Unknown]
  - Mobility decreased [Unknown]
  - Hypersensitivity [Unknown]
  - Overdose [Unknown]

NARRATIVE: CASE EVENT DATE: 20210714
